FAERS Safety Report 9105584 (Version 3)
Quarter: 2013Q2

REPORT INFORMATION
  Report Type: Spontaneous
  Country: US (occurrence: US)
  Receive Date: 20130220
  Receipt Date: 20130403
  Transmission Date: 20140414
  Serious: Yes (Other)
  Sender: FDA-Public Use
  Company Number: US-BAYER-2013-020130

PATIENT
  Age: 40 Year
  Sex: Female
  Weight: 89.8 kg

DRUGS (2)
  1. MIRENA [Suspect]
     Indication: CONTRACEPTION
     Dosage: 20 MCG/24HR, CONT
     Route: 015
     Dates: start: 20121206, end: 20130211
  2. MIRENA [Suspect]
     Indication: MENORRHAGIA

REACTIONS (4)
  - Genital haemorrhage [Unknown]
  - Device expulsion [None]
  - Menorrhagia [None]
  - Drug ineffective [None]
